FAERS Safety Report 4591281-2 (Version None)
Quarter: 2005Q1

REPORT INFORMATION
  Report Type: 
  Country: None (occurrence: None)
  Receive Date: 20050222
  Receipt Date: 20050209
  Transmission Date: 20050727
  Serious: Yes (Hospitalization, Other)
  Sender: FDA-Public Use
  Company Number: 2005032412

PATIENT
  Age: 77 Year
  Sex: Male

DRUGS (12)
  1. AMLODIPINE (AMLODIPINE) [Suspect]
     Indication: HYPERTENSION
     Dosage: 10 MG,
  2. LISINOPRIL [Suspect]
     Indication: HYPERTENSION
     Dosage: 20 MG,
  3. HYDROCHLOROTHIAZIDE [Suspect]
     Indication: HYPERTENSION
     Dosage: 12.5 MG,
  4. DOXAZOSIN MESYLATE [Suspect]
     Indication: HYPERTENSION
     Dosage: 8 MG,
  5. QUINAPRIL HCL [Suspect]
     Indication: HYPERTENSION
     Dosage: 20 MG,
  6. NIFEDIPINE [Suspect]
     Indication: HYPERTENSION
     Dosage: 60 MG, (TWICE DAILY)
  7. CLARITHROMYCIN [Suspect]
     Indication: ILL-DEFINED DISORDER
     Dosage: 500 MG (TWICE DAILY),
  8. CAPTOPRIL [Concomitant]
  9. METFORMIN HCL [Concomitant]
  10. GLYBURIDE [Concomitant]
  11. SALBUTAMOL (SALBUTAMOL) [Concomitant]
  12. BUDESONIDE (BUDESONIDE) [Concomitant]

REACTIONS (17)
  - ASTHENIA [None]
  - BRADYCARDIA [None]
  - CEREBROVASCULAR ACCIDENT [None]
  - CYANOSIS [None]
  - DEPRESSED LEVEL OF CONSCIOUSNESS [None]
  - DRUG INTERACTION [None]
  - ELECTROCARDIOGRAM ABNORMAL [None]
  - HYPERGLYCAEMIA [None]
  - HYPERTENSIVE CRISIS [None]
  - HYPOTENSION [None]
  - METABOLIC ACIDOSIS [None]
  - PERIPHERAL COLDNESS [None]
  - PULSE ABSENT [None]
  - RENAL IMPAIRMENT [None]
  - RHYTHM IDIOVENTRICULAR [None]
  - TACHYPNOEA [None]
  - VASCULAR RESISTANCE SYSTEMIC DECREASED [None]
